FAERS Safety Report 7674484-X (Version None)
Quarter: 2011Q3

REPORT INFORMATION
  Report Type: 
  Country: None (occurrence: None)
  Receive Date: 20110810
  Receipt Date: 20110727
  Transmission Date: 20111222
  Serious: Yes (Other)
  Sender: FDA-Public Use
  Company Number: PHHY2011BR68295

PATIENT
  Age: 55 Year
  Sex: Male

DRUGS (1)
  1. DIOVAN HCT [Suspect]
     Route: 048

REACTIONS (1)
  - DIABETES MELLITUS [None]
